FAERS Safety Report 23778611 (Version 1)
Quarter: 2024Q2

REPORT INFORMATION
  Report Type: Spontaneous
  Country: KR (occurrence: KR)
  Receive Date: 20240424
  Receipt Date: 20240424
  Transmission Date: 20240716
  Serious: Yes (Hospitalization)
  Sender: FDA-Public Use
  Company Number: KR-TAKEDA-2024TUS036347

PATIENT
  Sex: Female
  Weight: 75 kg

DRUGS (3)
  1. PANTOPRAZOLE SODIUM [Suspect]
     Active Substance: PANTOPRAZOLE SODIUM
     Indication: Hyperchlorhydria
     Dosage: 1 DF, 1X/DAY
     Route: 065
     Dates: start: 20230610, end: 20230617
  2. MEROPENEM [Suspect]
     Active Substance: MEROPENEM
     Indication: Acute cholecystitis necrotic
     Dosage: 1 DF, 2X/DAY
     Route: 065
     Dates: start: 20230609, end: 20230613
  3. TEICOPLANIN [Suspect]
     Active Substance: TEICOPLANIN
     Indication: Acute cholecystitis necrotic
     Dosage: 1 DOSAGE FORM, QD
     Route: 065
     Dates: start: 20230609, end: 20230613

REACTIONS (2)
  - Drug eruption [Recovering/Resolving]
  - Eosinophil count increased [Recovering/Resolving]

NARRATIVE: CASE EVENT DATE: 20230613
